FAERS Safety Report 4644960-2 (Version None)
Quarter: 2005Q2

REPORT INFORMATION
  Report Type: 
  Country: None (occurrence: None)
  Receive Date: 20050426
  Receipt Date: 20050417
  Transmission Date: 20051028
  Serious: Yes (Other)
  Sender: FDA-Public Use
  Company Number: 2186400

PATIENT
  Age: 76 Year
  Sex: Male
  Weight: 68.2 kg

DRUGS (5)
  1. SENSODYNE ORIGINAL FLAVOR [Suspect]
     Indication: SENSITIVITY OF TEETH
     Dates: start: 19650101
  2. MEVACOR [Concomitant]
     Route: 048
  3. CORGARD [Concomitant]
     Indication: BLOOD PRESSURE
     Dosage: 20MG PER DAY
     Route: 048
  4. PROCARDIA [Concomitant]
     Route: 048
  5. ALLOPURINOL [Concomitant]
     Route: 048

REACTIONS (2)
  - LIP AND/OR ORAL CAVITY CANCER [None]
  - ORAL PAIN [None]
